FAERS Safety Report 12853338 (Version 1)
Quarter: 2016Q4

REPORT INFORMATION
  Report Type: Spontaneous
  Country: US (occurrence: US)
  Receive Date: 20161017
  Receipt Date: 20161017
  Transmission Date: 20170207
  Serious: No
  Sender: FDA-Public Use
  Company Number: US-JAZZ-2016-US-014086

PATIENT
  Sex: Female

DRUGS (19)
  1. PROAIR HFA [Concomitant]
     Active Substance: ALBUTEROL SULFATE
  2. XYREM [Suspect]
     Active Substance: SODIUM OXYBATE
     Indication: NARCOLEPSY
     Dosage: 2 G, BID
     Route: 048
     Dates: start: 201303, end: 201304
  3. OXYCODONE AND ACETAMINOPHEN [Concomitant]
     Active Substance: ACETAMINOPHEN\OXYCODONE HYDROCHLORIDE
  4. VITAMIN B12 [Concomitant]
     Active Substance: CYANOCOBALAMIN
  5. XYREM [Suspect]
     Active Substance: SODIUM OXYBATE
     Dosage: DOSE ADJUSTMENTS
     Route: 048
     Dates: start: 201304, end: 201410
  6. NUVIGIL [Suspect]
     Active Substance: ARMODAFINIL
     Indication: PRODUCT USED FOR UNKNOWN INDICATION
  7. CYCLOBENZAPRINE [Concomitant]
     Active Substance: CYCLOBENZAPRINE
  8. LYRICA [Concomitant]
     Active Substance: PREGABALIN
  9. XYREM [Suspect]
     Active Substance: SODIUM OXYBATE
     Dosage: 5.25 G, BID
     Route: 048
     Dates: start: 201410
  10. MUCINEX [Concomitant]
     Active Substance: GUAIFENESIN
  11. ALLERGY [Concomitant]
     Active Substance: UNSPECIFIED INGREDIENT
  12. RITALIN [Concomitant]
     Active Substance: METHYLPHENIDATE HYDROCHLORIDE
  13. RANITIDINE. [Concomitant]
     Active Substance: RANITIDINE
  14. IBUPROFEN. [Concomitant]
     Active Substance: IBUPROFEN
  15. ZYRTEC [Concomitant]
     Active Substance: CETIRIZINE HYDROCHLORIDE
  16. VITAMIN D3 [Concomitant]
     Active Substance: CHOLECALCIFEROL
  17. QVAR [Concomitant]
     Active Substance: BECLOMETHASONE DIPROPIONATE
  18. ADDERALL [Suspect]
     Active Substance: AMPHETAMINE ASPARTATE\AMPHETAMINE SULFATE\DEXTROAMPHETAMINE SACCHARATE\DEXTROAMPHETAMINE SULFATE
     Indication: PRODUCT USED FOR UNKNOWN INDICATION
     Dosage: UNK
     Dates: start: 20140210
  19. CURCUMIN [Concomitant]
     Active Substance: CURCUMIN

REACTIONS (13)
  - Endodontic procedure [Unknown]
  - Coating in mouth [Unknown]
  - Back pain [Unknown]
  - Raynaud^s phenomenon [Not Recovered/Not Resolved]
  - Swelling face [Unknown]
  - Condition aggravated [Not Recovered/Not Resolved]
  - Headache [Unknown]
  - Drug ineffective [Unknown]
  - Hypothyroidism [Not Recovered/Not Resolved]
  - Pain in jaw [Unknown]
  - Intervertebral disc protrusion [Unknown]
  - Muscle tightness [Unknown]
  - Nausea [Unknown]
